FAERS Safety Report 18023259 (Version 2)
Quarter: 2020Q3

REPORT INFORMATION
  Report Type: Report from Study
  Country: None (occurrence: ZA)
  Receive Date: 20200714
  Receipt Date: 20200723
  Transmission Date: 20201103
  Serious: Yes (Other)
  Sender: FDA-Public Use
  Company Number: ZA-ABBVIE-20K-143-3477068-00

PATIENT
  Sex: Male

DRUGS (9)
  1. FOLIC ACID. [Concomitant]
     Active Substance: FOLIC ACID
     Indication: VITAMIN SUPPLEMENTATION
     Route: 048
     Dates: start: 202003
  2. VITAMIN D [Concomitant]
     Active Substance: VITAMIN D NOS
     Indication: PRODUCT USED FOR UNKNOWN INDICATION
  3. ARCOXIA [Concomitant]
     Active Substance: ETORICOXIB
     Indication: INFLAMMATION
     Route: 048
     Dates: start: 202003
  4. HUMIRA [Suspect]
     Active Substance: ADALIMUMAB
     Indication: RHEUMATOID ARTHRITIS
     Route: 058
     Dates: start: 20200508
  5. METHOTREXATE. [Concomitant]
     Active Substance: METHOTREXATE
     Indication: RHEUMATOID ARTHRITIS
     Route: 048
     Dates: start: 202003
  6. OMEX [Concomitant]
     Indication: GASTROINTESTINAL DISORDER PROPHYLAXIS
     Dosage: 1 DAILY
     Route: 048
  7. SERDEP [Concomitant]
     Indication: DEPRESSION
     Dosage: 1 DAILY
  8. PLASMOQUINE [Concomitant]
     Active Substance: CHLOROQUINE SULFATE
     Indication: RHEUMATOID ARTHRITIS
     Dosage: 1 DAILY
     Route: 048
  9. SALAZOPYRINE [Concomitant]
     Active Substance: SULFASALAZINE
     Indication: RHEUMATOID ARTHRITIS
     Dosage: 1 DAILY
     Route: 048
     Dates: start: 202003

REACTIONS (3)
  - Gastritis [Unknown]
  - Hiatus hernia [Not Recovered/Not Resolved]
  - Diaphragmatic hernia [Unknown]
